FAERS Safety Report 16769681 (Version 2)
Quarter: 2019Q4

REPORT INFORMATION
  Report Type: Spontaneous
  Country: IN (occurrence: IN)
  Receive Date: 20190903
  Receipt Date: 20191028
  Transmission Date: 20200122
  Serious: Yes (Other)
  Sender: FDA-Public Use
  Company Number: IN-009507513-1908IND010382

PATIENT
  Age: 55 Year
  Sex: Male

DRUGS (1)
  1. JANUMET [Suspect]
     Active Substance: METFORMIN HYDROCHLORIDE\SITAGLIPTIN PHOSPHATE
     Dosage: UNK
     Route: 048
     Dates: start: 2016

REACTIONS (4)
  - Product coating issue [Unknown]
  - Diabetes mellitus inadequate control [Unknown]
  - Suspected counterfeit product [Unknown]
  - Product taste abnormal [Unknown]

NARRATIVE: CASE EVENT DATE: 201908
